FAERS Safety Report 15654053 (Version 1)
Quarter: 2018Q4

REPORT INFORMATION
  Report Type: Spontaneous
  Country: US (occurrence: US)
  Receive Date: 20181124
  Receipt Date: 20181124
  Transmission Date: 20190205
  Serious: Yes (Hospitalization)
  Sender: FDA-Public Use
  Company Number: None

PATIENT
  Age: 74 Year
  Sex: Female
  Weight: 53.1 kg

DRUGS (8)
  1. CEFEPIME [Suspect]
     Active Substance: CEFEPIME HYDROCHLORIDE
     Indication: PARASPINAL ABSCESS
  2. PREDNISONE. [Concomitant]
     Active Substance: PREDNISONE
  3. CELLCEPT [Concomitant]
     Active Substance: MYCOPHENOLATE MOFETIL\MYCOPHENOLATE MOFETIL HYDROCHLORIDE
  4. ALLOPURINOL. [Concomitant]
     Active Substance: ALLOPURINOL
  5. PROBIOTICS [Concomitant]
     Active Substance: PROBIOTICS NOS
  6. ACYCLOVIR. [Concomitant]
     Active Substance: ACYCLOVIR
  7. NEORAL [Concomitant]
     Active Substance: CYCLOSPORINE
  8. ATENOLOL. [Concomitant]
     Active Substance: ATENOLOL

REACTIONS (9)
  - Headache [None]
  - Dyskinesia [None]
  - Blood creatinine increased [None]
  - Amnesia [None]
  - Confusional state [None]
  - Muscle spasms [None]
  - Nausea [None]
  - Muscle spasticity [None]
  - Aphasia [None]

NARRATIVE: CASE EVENT DATE: 20181107
